FAERS Safety Report 18806635 (Version 1)
Quarter: 2021Q1

REPORT INFORMATION
  Report Type: Spontaneous
  Country: US (occurrence: US)
  Receive Date: 20210128
  Receipt Date: 20210128
  Transmission Date: 20210419
  Serious: Yes (Death)
  Sender: FDA-Public Use
  Company Number: None

PATIENT
  Sex: Female

DRUGS (14)
  1. TRIAMTERENE HCTZ [Concomitant]
     Active Substance: HYDROCHLOROTHIAZIDE\TRIAMTERENE
  2. ALBUTEROL. [Concomitant]
     Active Substance: ALBUTEROL
  3. LORATADINE. [Concomitant]
     Active Substance: LORATADINE
  4. LORASARTAN [Concomitant]
  5. HYDROCODONE [Concomitant]
     Active Substance: HYDROCODONE
  6. CELECOXIB. [Concomitant]
     Active Substance: CELECOXIB
  7. OCREVUS [Concomitant]
     Active Substance: OCRELIZUMAB
  8. GABAPENTIN. [Concomitant]
     Active Substance: GABAPENTIN
  9. DALFAMPRIDINE. [Suspect]
     Active Substance: DALFAMPRIDINE
     Indication: MULTIPLE SCLEROSIS
     Route: 048
     Dates: start: 20170523
  10. TOPAMAX [Suspect]
     Active Substance: TOPIRAMATE
  11. TRIAMTERENE HCTZ [Suspect]
     Active Substance: HYDROCHLOROTHIAZIDE\TRIAMTERENE
  12. TYLENOL [Concomitant]
     Active Substance: ACETAMINOPHEN
  13. OMEPRAZOLE. [Concomitant]
     Active Substance: OMEPRAZOLE
  14. NABUMETONE. [Concomitant]
     Active Substance: NABUMETONE

REACTIONS (1)
  - Death [None]
